FAERS Safety Report 10611344 (Version 2)
Quarter: 2015Q2

REPORT INFORMATION
  Report Type: Spontaneous
  Country: IT (occurrence: IT)
  Receive Date: 20141126
  Receipt Date: 20150420
  Transmission Date: 20150821
  Serious: Yes (Hospitalization)
  Sender: FDA-Public Use
  Company Number: IT-TEVA-524350ISR

PATIENT
  Age: 69 Year
  Sex: Male

DRUGS (8)
  1. NORVASC 5 MG [Concomitant]
  2. OMEPRAZOLO [Concomitant]
     Active Substance: OMEPRAZOLE
  3. CARBOPLATINO TEVA [Suspect]
     Active Substance: CARBOPLATIN
     Dosage: 380 MILLIGRAM DAILY;
     Route: 041
     Dates: start: 20141001, end: 20141114
  4. EPIRUBICINA TEVA [Suspect]
     Active Substance: EPIRUBICIN
     Dosage: 80 MILLIGRAM DAILY;
     Route: 041
     Dates: start: 20141001, end: 20141114
  5. ATORVASTATINA [Concomitant]
     Active Substance: ATORVASTATIN
  6. ENAPREN 20 MG [Concomitant]
  7. BISOPROLOLO EMIFUMARATO [Concomitant]
     Active Substance: BISOPROLOL FUMARATE
  8. MODURETIC 5 MG + 50 MG [Concomitant]

REACTIONS (4)
  - Vomiting [Recovering/Resolving]
  - Asthenia [Recovering/Resolving]
  - Hypotension [Recovering/Resolving]
  - Nausea [Recovering/Resolving]

NARRATIVE: CASE EVENT DATE: 20141115
